FAERS Safety Report 7474713-1 (Version None)
Quarter: 2011Q1

REPORT INFORMATION
  Report Type: 
  Country: None (occurrence: None)
  Receive Date: 20110302
  Receipt Date: 20100628
  Transmission Date: 20110831
  Serious: Yes (Other)
  Sender: FDA-Public Use
  Company Number: 163-21880-10050388

PATIENT
  Age: 83 Year
  Sex: Female

DRUGS (1)
  1. REVLIMID [Suspect]
     Indication: MULTIPLE MYELOMA
     Dosage: 5 MG, EVERY OTHER DAY, PO
     Route: 048
     Dates: start: 20081201

REACTIONS (3)
  - SKIN CANCER [None]
  - POSTOPERATIVE WOUND INFECTION [None]
  - WHITE BLOOD CELL COUNT DECREASED [None]
